FAERS Safety Report 8801492 (Version 1)
Quarter: 2012Q4

REPORT INFORMATION
  Report Type: Report from Study
  Country: DE (occurrence: DE)
  Receive Date: 20120921
  Receipt Date: 20120921
  Transmission Date: 20130627
  Serious: Yes (Hospitalization)
  Sender: FDA-Public Use
  Company Number: DE-ROCHE-1133758

PATIENT
  Sex: Female

DRUGS (5)
  1. MABTHERA [Suspect]
     Indication: PRODUCT USED FOR UNKNOWN INDICATION
     Route: 065
     Dates: start: 20071019
  2. AZATHIOPRIN [Suspect]
     Indication: PRODUCT USED FOR UNKNOWN INDICATION
     Route: 065
     Dates: start: 200207
  3. RANTUDIL [Concomitant]
  4. TILIDINE [Concomitant]
  5. ADALIMUMAB [Concomitant]
     Route: 065
     Dates: start: 200606, end: 200803

REACTIONS (1)
  - Sudden hearing loss [Recovered/Resolved]
